FAERS Safety Report 8795886 (Version 3)
Quarter: 2012Q4

REPORT INFORMATION
  Report Type: 
  Country: CN (occurrence: CN)
  Receive Date: 20120920
  Receipt Date: 20121105
  Transmission Date: 20130627
  Serious: Yes (Hospitalization)
  Sender: FDA-Public Use
  Company Number: CN-JNJFOC-20120907739

PATIENT
  Age: 3 Year
  Sex: Female
  Weight: 13.5 kg

DRUGS (2)
  1. CHILDREN^S MOTRIN [Suspect]
     Route: 048
  2. CHILDREN^S MOTRIN [Suspect]
     Indication: PYREXIA
     Dosage: 1-3 mL (20-60mg)
     Route: 048
     Dates: start: 20120912, end: 20120912

REACTIONS (2)
  - Hypersensitivity [Recovered/Resolved]
  - Overdose [Unknown]
